FAERS Safety Report 4891169-3 (Version None)
Quarter: 2006Q1

REPORT INFORMATION
  Report Type: 
  Country: None (occurrence: None)
  Receive Date: 20060125
  Receipt Date: 20060105
  Transmission Date: 20060701
  Serious: Yes (Other)
  Sender: FDA-Public Use
  Company Number: US-GLAXOSMITHKLINE-A0587941A

PATIENT
  Age: 48 Year
  Sex: Female

DRUGS (4)
  1. WELLBUTRIN XL [Suspect]
     Indication: DEPRESSION
     Dosage: 150MG SINGLE DOSE
     Route: 048
     Dates: start: 20060103, end: 20060103
  2. KLONOPIN [Concomitant]
  3. EFFEXOR [Concomitant]
  4. PROVIGIL [Concomitant]

REACTIONS (4)
  - DENTAL DISCOMFORT [None]
  - DYSPHEMIA [None]
  - PARAESTHESIA [None]
  - RESTLESSNESS [None]
